FAERS Safety Report 9714265 (Version 2)
Quarter: 2013Q4

REPORT INFORMATION
  Report Type: Spontaneous
  Country: US (occurrence: US)
  Receive Date: 20131126
  Receipt Date: 20131126
  Transmission Date: 20140711
  Serious: No
  Sender: FDA-Public Use
  Company Number: US-GILEAD-2008-0019457

PATIENT
  Age: 80 Year
  Sex: Female
  Weight: 107.73 kg

DRUGS (8)
  1. LETAIRIS [Suspect]
     Indication: PULMONARY ARTERIAL HYPERTENSION
     Route: 048
     Dates: start: 200806, end: 20081217
  2. PROCARDIA [Concomitant]
  3. LASIX [Concomitant]
  4. COUMADIN [Concomitant]
  5. OXYGEN [Concomitant]
  6. NEXIUM [Concomitant]
  7. DARVOCET [Concomitant]
  8. K+ [Concomitant]

REACTIONS (3)
  - Chest discomfort [Unknown]
  - Dyspnoea [Recovered/Resolved]
  - Oedema peripheral [Recovered/Resolved]
